FAERS Safety Report 6702998-5 (Version None)
Quarter: 2010Q2

REPORT INFORMATION
  Report Type: 
  Country: None (occurrence: None)
  Receive Date: 20100429
  Receipt Date: 20100429
  Transmission Date: 20101027
  Serious: Yes (Disabling)
  Sender: FDA-Public Use
  Company Number: None

PATIENT
  Age: 65 Year
  Sex: Male
  Weight: 101 kg

DRUGS (1)
  1. HEPARIN [Suspect]
     Indication: HEPARIN NEUTRALISATION THERAPY
     Dates: start: 20100302, end: 20100302

REACTIONS (2)
  - INTRACARDIAC THROMBUS [None]
  - PRODUCT MEASURED POTENCY ISSUE [None]
